FAERS Safety Report 5285268-4 (Version None)
Quarter: 2007Q1

REPORT INFORMATION
  Report Type: 
  Country: None (occurrence: None)
  Receive Date: 20061229
  Receipt Date: 20060809
  Transmission Date: 20070707
  Serious: Yes (Hospitalization)
  Sender: FDA-Public Use
  Company Number: 2006UW15888

PATIENT
  Age: 37 Year
  Sex: Female
  Weight: 131.5431 kg

DRUGS (14)
  1. CRESTOR [Suspect]
     Indication: HYPERCHOLESTEROLAEMIA
     Dosage: 10 MG DAILY PO
     Route: 048
     Dates: start: 20041006, end: 20041001
  2. OXYCONTIN [Concomitant]
  3. FLEXERIL [Concomitant]
  4. ACETAMINOPHEN AND HYDROCODONE BITARTRATE [Concomitant]
  5. ZOLOFT [Concomitant]
  6. CYCLOBENZAPRINE HCL [Concomitant]
  7. PROZAC [Concomitant]
  8. DESOGEN [Concomitant]
  9. MICATIN [Concomitant]
  10. ATENOLOL [Concomitant]
  11. LISINOPRIL [Concomitant]
  12. LASIX [Concomitant]
  13. AMITRIPTYLINE HCL [Concomitant]
  14. FLEXERIL [Concomitant]

REACTIONS (2)
  - RENAL FAILURE [None]
  - RHABDOMYOLYSIS [None]
